FAERS Safety Report 17791833 (Version 6)
Quarter: 2020Q4

REPORT INFORMATION
  Report Type: Report from Study
  Country: US (occurrence: US)
  Receive Date: 20200515
  Receipt Date: 20201223
  Transmission Date: 20210113
  Serious: No
  Sender: FDA-Public Use
  Company Number: NVSC2020US131605

PATIENT
  Sex: Male

DRUGS (1)
  1. ENTRESTO [Suspect]
     Active Substance: SACUBITRIL\VALSARTAN
     Indication: PRODUCT USED FOR UNKNOWN INDICATION
     Dosage: 1 DF (24/26 MG), BID
     Route: 048
     Dates: start: 202004

REACTIONS (7)
  - Rhinorrhoea [Unknown]
  - Therapeutic response unexpected [Recovering/Resolving]
  - Cough [Unknown]
  - Pruritus [Unknown]
  - Product availability issue [Unknown]
  - Musculoskeletal discomfort [Unknown]
  - Joint swelling [Recovering/Resolving]
